FAERS Safety Report 5060961-7 (Version None)
Quarter: 2006Q3

REPORT INFORMATION
  Report Type: 
  Country: None (occurrence: None)
  Receive Date: 20060720
  Receipt Date: 20060707
  Transmission Date: 20061208
  Serious: Yes (Life-Threatening, Hospitalization, Other)
  Sender: FDA-Public Use
  Company Number: 200613282BWH

PATIENT
  Age: 37 Year
  Sex: Female

DRUGS (4)
  1. CIPRO XR [Suspect]
     Indication: URINARY TRACT INFECTION
     Dosage: ONCE, ORAL
     Route: 048
     Dates: start: 20030701, end: 20060701
  2. ADVIL [Concomitant]
  3. ALLEGRA [Concomitant]
  4. PATANOL [Concomitant]

REACTIONS (26)
  - APNOEA [None]
  - BRAIN OEDEMA [None]
  - CERVICAL CYST [None]
  - CHILLS [None]
  - COAGULOPATHY [None]
  - COMA [None]
  - DEPRESSED LEVEL OF CONSCIOUSNESS [None]
  - DISSEMINATED INTRAVASCULAR COAGULATION [None]
  - DRUG HYPERSENSITIVITY [None]
  - DRUG INEFFECTIVE [None]
  - FIBRIN D DIMER INCREASED [None]
  - HAEMOGLOBIN DECREASED [None]
  - HYPERTHERMIA MALIGNANT [None]
  - HYPOKALAEMIA [None]
  - INCOHERENT [None]
  - MALAISE [None]
  - MENTAL STATUS CHANGES [None]
  - MONOPARESIS [None]
  - OVARIAN CYST [None]
  - PERINEPHRIC ABSCESS [None]
  - PNEUMONIA [None]
  - RESPIRATORY FAILURE [None]
  - RETCHING [None]
  - SINUSITIS [None]
  - THROMBOCYTOPENIA [None]
  - UROSEPSIS [None]
